FAERS Safety Report 23099128 (Version 2)
Quarter: 2023Q4

REPORT INFORMATION
  Report Type: Spontaneous
  Country: US (occurrence: US)
  Receive Date: 20231024
  Receipt Date: 20231030
  Transmission Date: 20240110
  Serious: Yes (Hospitalization)
  Sender: FDA-Public Use
  Company Number: US-ABBVIE-5462722

PATIENT
  Sex: Female

DRUGS (2)
  1. CREON [Suspect]
     Active Substance: PANCRELIPASE AMYLASE\PANCRELIPASE LIPASE\PANCRELIPASE PROTEASE
     Indication: Pancreatic failure
     Dosage: FORM STRENGTH: 24000 UNIT?FREQUENCY TEXT: SEE AED
     Route: 048
     Dates: start: 2015
  2. CREON [Suspect]
     Active Substance: PANCRELIPASE AMYLASE\PANCRELIPASE LIPASE\PANCRELIPASE PROTEASE
     Indication: Pancreatic failure
     Route: 048

REACTIONS (17)
  - Ulcer [Unknown]
  - Reflux laryngitis [Unknown]
  - Headache [Unknown]
  - Eructation [Recovered/Resolved with Sequelae]
  - Helicobacter infection [Not Recovered/Not Resolved]
  - Formication [Unknown]
  - Anorectal disorder [Recovered/Resolved with Sequelae]
  - Inflammatory bowel disease [Unknown]
  - Nervousness [Unknown]
  - Abdominal discomfort [Recovered/Resolved with Sequelae]
  - Depressed mood [Unknown]
  - Loss of personal independence in daily activities [Unknown]
  - Scar [Unknown]
  - Grief reaction [Unknown]
  - Paranoia [Unknown]
  - Gastrointestinal disorder [Unknown]
  - General physical condition abnormal [Unknown]

NARRATIVE: CASE EVENT DATE: 20190101
